FAERS Safety Report 10207502 (Version 1)
Quarter: 2014Q2

REPORT INFORMATION
  Report Type: Spontaneous
  Country: US (occurrence: US)
  Receive Date: 20140530
  Receipt Date: 20140530
  Transmission Date: 20141212
  Serious: No
  Sender: FDA-Public Use
  Company Number: US-GLAXOSMITHKLINE-A1046124A

PATIENT
  Sex: Male

DRUGS (7)
  1. INFLUENZA VACCINE UNSPECIFIED 2013-2014 SEASON [Suspect]
     Indication: PROPHYLAXIS
     Route: 065
     Dates: start: 201309, end: 201309
  2. VENTOLIN [Suspect]
     Indication: CHRONIC OBSTRUCTIVE PULMONARY DISEASE
     Dosage: 2PUFF SEE DOSAGE TEXT
     Route: 055
     Dates: start: 2009
  3. ADVAIR HFA [Suspect]
     Indication: CHRONIC OBSTRUCTIVE PULMONARY DISEASE
     Dosage: 1PUFF TWICE PER DAY
     Route: 055
     Dates: start: 20111214
  4. LISINOPRIL [Concomitant]
  5. PREDNISONE [Concomitant]
  6. ASPIRIN [Concomitant]
  7. IBUPROFEN [Concomitant]

REACTIONS (8)
  - Productive cough [Not Recovered/Not Resolved]
  - Choking sensation [Not Recovered/Not Resolved]
  - Drug ineffective [Unknown]
  - Drug dispensing error [Unknown]
  - Rhinorrhoea [Not Recovered/Not Resolved]
  - Ligament sprain [Unknown]
  - Fall [Unknown]
  - Arthritis [Unknown]
